FAERS Safety Report 5568976-7 (Version None)
Quarter: 2007Q4

REPORT INFORMATION
  Report Type: 
  Country: None (occurrence: None)
  Receive Date: 20071220
  Receipt Date: 20070413
  Transmission Date: 20080405
  Serious: No
  Sender: FDA-Public Use
  Company Number: A0647500A

PATIENT
  Sex: Male

DRUGS (4)
  1. AVODART [Suspect]
     Indication: BLADDER DISORDER
     Dosage: .5MG UNKNOWN
     Route: 048
     Dates: start: 20070101
  2. GLUTARAL [Concomitant]
  3. LIPITOR [Concomitant]
  4. UNSPECIFIED MEDICATIONS [Concomitant]

REACTIONS (2)
  - BLADDER DISORDER [None]
  - URINE OUTPUT DECREASED [None]
